FAERS Safety Report 12142044 (Version 2)
Quarter: 2016Q1

REPORT INFORMATION
  Report Type: Spontaneous
  Country: BR (occurrence: BR)
  Receive Date: 20160303
  Receipt Date: 20160307
  Transmission Date: 20160526
  Serious: Yes (Hospitalization, Other)
  Sender: FDA-Public Use
  Company Number: BR-JNJFOC-20160123819

PATIENT
  Age: 29 Year
  Sex: Female
  Weight: 55.4 kg

DRUGS (1)
  1. REMICADE [Suspect]
     Active Substance: INFLIXIMAB
     Indication: CROHN^S DISEASE
     Route: 042

REACTIONS (8)
  - Abdominal abscess [Unknown]
  - Inappropriate schedule of drug administration [Unknown]
  - Malaise [Unknown]
  - Abdominal wall abscess [Unknown]
  - Surgery [Unknown]
  - Appendicitis perforated [Unknown]
  - Hospitalisation [Unknown]
  - Swelling [Unknown]

NARRATIVE: CASE EVENT DATE: 201512
